FAERS Safety Report 13224570 (Version 1)
Quarter: 2017Q1

REPORT INFORMATION
  Report Type: Spontaneous
  Country: US (occurrence: US)
  Receive Date: 20170213
  Receipt Date: 20170213
  Transmission Date: 20170428
  Serious: No
  Sender: FDA-Public Use
  Company Number: US-ASTRAZENECA-2017SE12944

PATIENT
  Sex: Female
  Weight: 63.5 kg

DRUGS (7)
  1. ATACAND HCT [Suspect]
     Active Substance: CANDESARTAN CILEXETIL\HYDROCHLOROTHIAZIDE
     Indication: HYPERTENSION
     Dosage: 32-12.5MG, DAILY
     Route: 048
     Dates: start: 2007, end: 20170118
  2. ATACAND HCT [Suspect]
     Active Substance: CANDESARTAN CILEXETIL\HYDROCHLOROTHIAZIDE
     Indication: HYPERTENSION
     Dosage: 32-12.5MG, DAILY CANDESARTAN CILEXETIL HYDROCHLOROTHIAZIDE
     Route: 048
     Dates: start: 20170119
  3. ATACAND HCT [Suspect]
     Active Substance: CANDESARTAN CILEXETIL\HYDROCHLOROTHIAZIDE
     Indication: HYPERTENSION
     Dosage: 32-12.5MG, DAILY
     Route: 048
     Dates: start: 2007, end: 20170118
  4. PREMARIN [Concomitant]
     Active Substance: ESTROGENS, CONJUGATED
     Indication: URINARY TRACT INFECTION
     Dates: start: 2002
  5. ATACAND HCT [Suspect]
     Active Substance: CANDESARTAN CILEXETIL\HYDROCHLOROTHIAZIDE
     Indication: HYPERTENSION
     Dosage: 32-12.5MG, DAILY CANDESARTAN CILEXETIL HYDROCHLOROTHIAZIDE
     Route: 048
     Dates: start: 20170119
  6. VITAMINS [Concomitant]
     Active Substance: VITAMINS
  7. ALPRAZOLAM. [Concomitant]
     Active Substance: ALPRAZOLAM
     Indication: ANXIETY
     Dosage: 0.5MG AS REQUIRED
     Route: 048
     Dates: start: 2009

REACTIONS (4)
  - Nasopharyngitis [Unknown]
  - Cough [Unknown]
  - Dizziness [Not Recovered/Not Resolved]
  - Sinusitis [Unknown]
